FAERS Safety Report 18649979 (Version 2)
Quarter: 2021Q1

REPORT INFORMATION
  Report Type: Report from Study
  Country: IL (occurrence: IL)
  Receive Date: 20201222
  Receipt Date: 20210127
  Transmission Date: 20210419
  Serious: Yes (Other)
  Sender: FDA-Public Use
  Company Number: NVSC2020IL335384

PATIENT
  Age: 48 Year
  Sex: Female
  Weight: 68 kg

DRUGS (2)
  1. BYL719 [Suspect]
     Active Substance: ALPELISIB
     Indication: LIP AND/OR ORAL CAVITY CANCER
  2. BYL719 [Suspect]
     Active Substance: ALPELISIB
     Indication: HEAD AND NECK CANCER
     Dosage: 300 OT
     Route: 048
     Dates: start: 20200929, end: 20201020

REACTIONS (2)
  - COVID-19 [Recovered/Resolved]
  - General physical health deterioration [Unknown]

NARRATIVE: CASE EVENT DATE: 20201020
